FAERS Safety Report 25936730 (Version 1)
Quarter: 2025Q4

REPORT INFORMATION
  Report Type: Report from Study
  Country: None (occurrence: AU)
  Receive Date: 20251017
  Receipt Date: 20251017
  Transmission Date: 20260117
  Serious: Yes (Death, Hospitalization, Disabling, Other)
  Sender: ALNYLAM PHARMACEUTICALS
  Company Number: AU-ALNYLAM PHARMACEUTICALS, INC.-ALN-2025-005471

PATIENT
  Age: 76 Year
  Weight: 53.2 kg

DRUGS (1)
  1. AMVUTTRA [Suspect]
     Active Substance: VUTRISIRAN
     Indication: Hereditary neuropathic amyloidosis
     Route: 065

REACTIONS (8)
  - Amyloidosis [Fatal]
  - Cerebrovascular accident [Unknown]
  - Wound infection pseudomonas [Not Recovered/Not Resolved]
  - Hypokalaemia [Not Recovered/Not Resolved]
  - Diabetes mellitus [Unknown]
  - Localised infection [Not Recovered/Not Resolved]
  - Malnutrition [Unknown]
  - Electrolyte imbalance [Unknown]
